FAERS Safety Report 8924677 (Version 2)
Quarter: 2012Q4

REPORT INFORMATION
  Report Type: 
  Country: US (occurrence: US)
  Receive Date: 20121126
  Receipt Date: 20121227
  Transmission Date: 20130627
  Serious: Yes (Other)
  Sender: FDA-Public Use
  Company Number: US-FRI-1000040590

PATIENT
  Age: 76 Year
  Sex: Female

DRUGS (5)
  1. NAMENDA [Suspect]
     Indication: DEMENTIA ALZHEIMER^S TYPE
     Dosage: 5 mg
     Route: 048
     Dates: start: 201211, end: 201211
  2. NAMENDA [Suspect]
     Indication: DEMENTIA ALZHEIMER^S TYPE
     Dosage: 5 mg BID
     Route: 048
     Dates: start: 201211, end: 201211
  3. CITALOPRAM [Concomitant]
     Indication: DEPRESSION
  4. QUETIAPINE [Concomitant]
  5. SYNTHROID [Concomitant]
     Indication: THYROID FUNCTION TEST ABNORMAL

REACTIONS (1)
  - Cognitive disorder [Not Recovered/Not Resolved]
